FAERS Safety Report 5289247-2 (Version None)
Quarter: 2007Q2

REPORT INFORMATION
  Report Type: 
  Country: None (occurrence: None)
  Receive Date: 20070403
  Receipt Date: 20070403
  Transmission Date: 20071010
  Serious: Yes (Hospitalization)
  Sender: FDA-Public Use
  Company Number: None

PATIENT
  Age: 39 Year
  Sex: Female
  Weight: 55.7924 kg

DRUGS (1)
  1. AVELOX [Suspect]
     Indication: ACUTE SINUSITIS
     Dosage: 400MG ONCE PER DAY PO  2 DOSES
     Route: 048
     Dates: start: 20070326, end: 20070327

REACTIONS (7)
  - AGITATION [None]
  - ANXIETY [None]
  - CHEST PAIN [None]
  - FEELING ABNORMAL [None]
  - HYPERVENTILATION [None]
  - INSOMNIA [None]
  - THINKING ABNORMAL [None]
